FAERS Safety Report 5163354-7 (Version None)
Quarter: 2006Q4

REPORT INFORMATION
  Report Type: 
  Country: None (occurrence: None)
  Receive Date: 20061121
  Receipt Date: 20061114
  Transmission Date: 20070319
  Serious: Yes (Other)
  Sender: FDA-Public Use
  Company Number: 2006SP006415

PATIENT
  Sex: Male
  Weight: 71.8 kg

DRUGS (13)
  1. TEMODAR [Suspect]
     Indication: GLIOBLASTOMA MULTIFORME
     Dosage: 75 MG/M2;QM;PO
     Route: 048
     Dates: start: 20061017, end: 20061107
  2. TEMODAR [Suspect]
  3. ATIVAN [Concomitant]
  4. BACTRIM DS [Concomitant]
  5. DEXAMERHASONE [Concomitant]
  6. DILANTIN [Concomitant]
  7. GARLIC TABLET [Concomitant]
  8. LUNESTA [Concomitant]
  9. MILK OF MAGNESIA [Concomitant]
  10. MULTIPLE VITAMIN [Concomitant]
  11. PEPCID [Concomitant]
  12. SENOKOT [Concomitant]
  13. ZOFRAN [Concomitant]

REACTIONS (1)
  - DEEP VEIN THROMBOSIS [None]
